FAERS Safety Report 10156644 (Version 2)
Quarter: 2016Q1

REPORT INFORMATION
  Report Type: Spontaneous
  Country: CA (occurrence: CA)
  Receive Date: 20140507
  Receipt Date: 20160211
  Transmission Date: 20160525
  Serious: Yes (Disabling)
  Sender: FDA-Public Use
  Company Number: CA-RANBAXY-2014US-80906

PATIENT
  Age: 66 Year
  Sex: Female
  Weight: 77.1 kg

DRUGS (7)
  1. PMS- PAROXETINE [Concomitant]
     Indication: PRODUCT USED FOR UNKNOWN INDICATION
     Dosage: UNK
     Route: 065
  2. TEVA-BETAHISTINE [Concomitant]
     Indication: PRODUCT USED FOR UNKNOWN INDICATION
     Route: 065
  3. PANTOPRAZOLE [Suspect]
     Active Substance: PANTOPRAZOLE SODIUM
     Indication: GASTROOESOPHAGEAL REFLUX DISEASE
     Dosage: 40 MG, QD
     Route: 048
     Dates: start: 20060715, end: 20130112
  4. MAR-AMLODIPINE [Concomitant]
     Indication: PRODUCT USED FOR UNKNOWN INDICATION
     Dosage: UNK
     Route: 065
  5. SYNTHROID [Concomitant]
     Active Substance: LEVOTHYROXINE SODIUM
     Indication: PRODUCT USED FOR UNKNOWN INDICATION
     Dosage: UNK
     Route: 065
  6. APO-MEDROXY 2.5 [Concomitant]
     Indication: PRODUCT USED FOR UNKNOWN INDICATION
     Dosage: UNK
     Route: 065
  7. PREMARINE [Concomitant]
     Indication: PRODUCT USED FOR UNKNOWN INDICATION
     Dosage: UNK
     Route: 065

REACTIONS (23)
  - Urticaria [Recovered/Resolved]
  - Abdominal pain lower [Recovered/Resolved]
  - Onychomycosis [Recovered/Resolved]
  - Condition aggravated [Recovered/Resolved]
  - Psoriasis [Recovered/Resolved]
  - Dizziness [Recovered/Resolved]
  - Vaginal haemorrhage [Recovered/Resolved]
  - Hypersomnia [Recovered/Resolved]
  - Fatigue [Recovered/Resolved]
  - Palpitations [Recovered/Resolved]
  - Malaise [Recovered/Resolved]
  - Anorectal discomfort [Recovered/Resolved]
  - Appendicitis [Recovered/Resolved]
  - Nausea [Recovered/Resolved]
  - Mood altered [Recovered/Resolved]
  - Myalgia [Recovered/Resolved]
  - Bladder discomfort [Recovered/Resolved]
  - Abdominal discomfort [Recovered/Resolved]
  - Discomfort [Recovered/Resolved]
  - Abdominal pain [Recovered/Resolved]
  - Liver disorder [Recovered/Resolved]
  - Vulvovaginal discomfort [Recovered/Resolved]
  - Bladder pain [Recovered/Resolved]

NARRATIVE: CASE EVENT DATE: 200609
